FAERS Safety Report 6852523-3 (Version None)
Quarter: 2010Q3

REPORT INFORMATION
  Report Type: 
  Country: None (occurrence: None)
  Receive Date: 20100717
  Receipt Date: 20071116
  Transmission Date: 20110219
  Serious: No
  Sender: FDA-Public Use
  Company Number: US-PFIZER INC-2007097799

PATIENT
  Sex: Male

DRUGS (1)
  1. CHANTIX [Suspect]

REACTIONS (5)
  - ABDOMINAL PAIN [None]
  - HYPOAESTHESIA FACIAL [None]
  - PARAESTHESIA [None]
  - SEXUAL DYSFUNCTION [None]
  - VISION BLURRED [None]
